FAERS Safety Report 9351466 (Version 2)
Quarter: 2013Q3

REPORT INFORMATION
  Report Type: Spontaneous
  Country: US (occurrence: US)
  Receive Date: 20130617
  Receipt Date: 20130708
  Transmission Date: 20140515
  Serious: Yes (Other)
  Sender: FDA-Public Use
  Company Number: US-B.I. PHARMACEUTICALS,INC./RIDGEFIELD-2013-BI-16914BP

PATIENT
  Age: 77 Year
  Sex: Female
  Weight: 87.9 kg

DRUGS (5)
  1. PRADAXA [Suspect]
     Indication: ATRIAL FIBRILLATION
     Dosage: 300 MG
     Route: 048
     Dates: start: 20120417, end: 20121123
  2. PRADAXA [Suspect]
     Dosage: 150 MG
     Route: 048
  3. ASA [Concomitant]
     Indication: ANTIPLATELET THERAPY
  4. DRONEDARONE [Concomitant]
     Indication: ARRHYTHMIA
     Dates: start: 20120523
  5. PRAVASTATIN [Concomitant]
     Indication: HYPERLIPIDAEMIA
     Dates: start: 20130201

REACTIONS (1)
  - Ischaemic stroke [Recovered/Resolved]
